FAERS Safety Report 5238675-X (Version None)
Quarter: 2007Q1

REPORT INFORMATION
  Report Type: 
  Country: None (occurrence: None)
  Receive Date: 20070215
  Receipt Date: 20070207
  Transmission Date: 20070707
  Serious: Yes (Hospitalization, Disabling)
  Sender: FDA-Public Use
  Company Number: US-SANOFI-SYNTHELABO-A03200701147

PATIENT
  Age: 25 Year
  Sex: Female

DRUGS (1)
  1. AMBIEN [Suspect]
     Indication: INSOMNIA
     Route: 048
     Dates: start: 20030101, end: 20030101

REACTIONS (10)
  - AMNESIA [None]
  - DRUG EFFECT DECREASED [None]
  - DYSARTHRIA [None]
  - FACIAL BONES FRACTURE [None]
  - GAIT DISTURBANCE [None]
  - HALLUCINATIONS, MIXED [None]
  - INJURY [None]
  - MOUTH INJURY [None]
  - SKIN LACERATION [None]
  - SLEEP WALKING [None]
